FAERS Safety Report 6558391-1 (Version None)
Quarter: 2010Q1

REPORT INFORMATION
  Report Type: 
  Country: None (occurrence: None)
  Receive Date: 20100129
  Receipt Date: 20100120
  Transmission Date: 20100710
  Serious: Yes (Hospitalization)
  Sender: FDA-Public Use
  Company Number: CH-JNJFOC-20100107285

PATIENT
  Age: 80 Year
  Sex: Female

DRUGS (10)
  1. RISPERDAL [Suspect]
     Indication: DEPRESSION
     Route: 065
  2. RISPERDAL [Suspect]
     Route: 065
  3. RISPERDAL [Suspect]
     Route: 065
  4. RISPERDAL [Suspect]
     Route: 065
  5. TRAZODONE HCL [Suspect]
     Indication: DRUG USE FOR UNKNOWN INDICATION
     Route: 048
  6. CIPRALEX [Concomitant]
     Route: 048
  7. CIPRALEX [Concomitant]
     Route: 048
  8. DISTRANEURIN [Concomitant]
     Route: 048
  9. TEMESTA [Concomitant]
     Route: 048
  10. TEMESTA [Concomitant]
     Route: 048

REACTIONS (1)
  - PLEUROTHOTONUS [None]
